FAERS Safety Report 5213545-1 (Version None)
Quarter: 2007Q1

REPORT INFORMATION
  Report Type: 
  Country: None (occurrence: None)
  Receive Date: 20070119
  Receipt Date: 20070108
  Transmission Date: 20070707
  Serious: Yes (Hospitalization)
  Sender: FDA-Public Use
  Company Number: 2007SE00227

PATIENT
  Age: 28564 Day
  Sex: Male

DRUGS (5)
  1. ATACAND [Suspect]
     Indication: CARDIAC FAILURE
     Route: 048
     Dates: start: 20060622
  2. FURIX [Suspect]
     Indication: CARDIAC FAILURE
     Route: 048
     Dates: start: 20060622
  3. DIGOXIN [Suspect]
     Indication: CARDIAC FAILURE
     Route: 048
     Dates: start: 20060622
  4. METOPROLOL SUCCINATE [Suspect]
     Indication: CARDIAC FAILURE
     Route: 048
     Dates: start: 20060622
  5. WARAN [Concomitant]
     Indication: ATRIAL FIBRILLATION
     Route: 048
     Dates: start: 20060622

REACTIONS (1)
  - DUODENAL ULCER HAEMORRHAGE [None]
